FAERS Safety Report 25951432 (Version 1)
Quarter: 2025Q4

REPORT INFORMATION
  Report Type: Spontaneous
  Country: US (occurrence: US)
  Receive Date: 20251023
  Receipt Date: 20251023
  Transmission Date: 20260117
  Serious: No
  Sender: CELLTRION
  Company Number: US-CELLTRION INC.-2024US025158

PATIENT

DRUGS (1)
  1. INFLECTRA [Suspect]
     Active Substance: INFLIXIMAB-DYYB
     Indication: Crohn^s disease
     Dosage: 500 MILLIGRAMS EVERY 6 WEEKS
     Route: 042

REACTIONS (4)
  - Product packaging confusion [Unknown]
  - Product dose omission issue [Unknown]
  - Overdose [Unknown]
  - Intentional product use issue [Unknown]
